FAERS Safety Report 8079998-9 (Version None)
Quarter: 2012Q1

REPORT INFORMATION
  Report Type: 
  Country: None (occurrence: None)
  Receive Date: 20120128
  Receipt Date: 20110803
  Transmission Date: 20120608
  Serious: No
  Sender: FDA-Public Use
  Company Number: US-ABBOTT-11P-163-0843799-00

PATIENT
  Age: 27 Year
  Sex: Female

DRUGS (4)
  1. BUDESONIDE [Concomitant]
     Indication: PRODUCT USED FOR UNKNOWN INDICATION
     Dosage: IN THE MORNING
  2. MERCAPTOPURINE [Concomitant]
     Indication: PRODUCT USED FOR UNKNOWN INDICATION
  3. HUMIRA [Suspect]
     Indication: CROHN'S DISEASE
     Dosage: (160MG LOADING DOSE)
     Dates: start: 20110803
  4. HUMIRA [Suspect]

REACTIONS (1)
  - INJECTION SITE PAIN [None]
